FAERS Safety Report 8813540 (Version 1)
Quarter: 2012Q4

REPORT INFORMATION
  Report Type: 
  Country: US (occurrence: US)
  Receive Date: 20120927
  Receipt Date: 20120927
  Transmission Date: 20130627
  Serious: No
  Sender: FDA-Public Use
  Company Number: US-AMGEN-USASP2012050149

PATIENT
  Age: 75 Year
  Sex: Female
  Weight: 54.42 kg

DRUGS (6)
  1. PROLIA [Suspect]
     Indication: OSTEOPOROSIS POSTMENOPAUSAL
     Dosage: 60 mg, q6mo
     Route: 058
     Dates: start: 20110608
  2. PROLIA [Suspect]
     Dosage: UNK, q6mo
     Dates: start: 20111214
  3. PROLIA [Suspect]
     Dosage: UNK, q6mo
     Dates: start: 20120618
  4. CALCIUM [Concomitant]
     Dosage: UNK
  5. SIMVASTATIN [Concomitant]
     Indication: BLOOD CHOLESTEROL INCREASED
     Dosage: 20 mg, qd
     Route: 048
  6. FISH OIL [Concomitant]
     Dosage: UNK

REACTIONS (11)
  - Dizziness [Not Recovered/Not Resolved]
  - Muscular weakness [Not Recovered/Not Resolved]
  - Vertigo [Not Recovered/Not Resolved]
  - Cystitis [Not Recovered/Not Resolved]
  - Somnolence [Not Recovered/Not Resolved]
  - Mycotic allergy [Not Recovered/Not Resolved]
  - Sinus disorder [Not Recovered/Not Resolved]
  - Gait disturbance [Not Recovered/Not Resolved]
  - Middle ear effusion [Not Recovered/Not Resolved]
  - Respiratory disorder [Not Recovered/Not Resolved]
  - Paraesthesia [Recovered/Resolved]
